FAERS Safety Report 21470769 (Version 5)
Quarter: 2025Q3

REPORT INFORMATION
  Report Type: Spontaneous
  Country: EU (occurrence: EU)
  Receive Date: 20221018
  Receipt Date: 20250813
  Transmission Date: 20251021
  Serious: Yes (Hospitalization, Other)
  Sender: AUROBINDO
  Company Number: EU-BENE-Lit_PT_20220926_141

PATIENT
  Age: 30 Year
  Sex: Male

DRUGS (2)
  1. IBUPROFEN [Suspect]
     Active Substance: IBUPROFEN
     Indication: Dental care
     Dosage: 600 MILLIGRAM, 3 TIMES A DAY(600 MG EVERY 8 HOURS)
     Route: 065
  2. IBUPROFEN [Suspect]
     Active Substance: IBUPROFEN
     Indication: Toothache

REACTIONS (12)
  - Hypoplastic anaemia [Recovered/Resolved]
  - Acute kidney injury [Recovered/Resolved]
  - Pigment nephropathy [Recovering/Resolving]
  - Haemoglobinuria [Recovered/Resolved]
  - Chromaturia [Recovered/Resolved]
  - Abdominal pain [Recovered/Resolved]
  - Abdominal discomfort [Recovered/Resolved]
  - Intravascular haemolysis [Recovered/Resolved]
  - Proteinuria [Recovered/Resolved]
  - Injury [Recovered/Resolved]
  - Normochromic normocytic anaemia [Recovered/Resolved]
  - Dehydration [Recovered/Resolved]

NARRATIVE: CASE EVENT DATE: 20170101
